FAERS Safety Report 4460139-1 (Version None)
Quarter: 2004Q3

REPORT INFORMATION
  Report Type: 
  Country: None (occurrence: None)
  Receive Date: 20040923
  Receipt Date: 20040907
  Transmission Date: 20050211
  Serious: Yes (Hospitalization)
  Sender: FDA-Public Use
  Company Number: DSA_24610_2004

PATIENT
  Age: 71 Year
  Sex: Male
  Weight: 47 kg

DRUGS (8)
  1. RENIVACE [Suspect]
     Indication: HYPERTENSION
     Dosage: 5 MG BID PO
     Route: 048
     Dates: start: 20040205, end: 20040623
  2. RENIVACE [Suspect]
     Indication: HYPERTENSION
     Dosage: DF
  3. BLOPRESS [Suspect]
     Indication: HYPERTENSION
     Dosage: 8 MG Q DAY PO
     Route: 048
     Dates: start: 20040415
  4. ADALAT [Concomitant]
  5. PRECIPITATED CALCIUM CARBONATE [Concomitant]
  6. LASIX [Concomitant]
  7. ALFAROL [Concomitant]
  8. POLARAMINE [Concomitant]

REACTIONS (11)
  - ANGIONEUROTIC OEDEMA [None]
  - BLOOD ALKALINE PHOSPHATASE INCREASED [None]
  - BLOOD CHLORIDE DECREASED [None]
  - BLOOD CREATININE INCREASED [None]
  - BLOOD UREA INCREASED [None]
  - EOSINOPHIL COUNT INCREASED [None]
  - HAEMATOCRIT DECREASED [None]
  - HAEMOGLOBIN DECREASED [None]
  - PLATELET COUNT DECREASED [None]
  - RED BLOOD CELL COUNT DECREASED [None]
  - URTICARIA [None]
